FAERS Safety Report 10222044 (Version 1)
Quarter: 2014Q2

REPORT INFORMATION
  Report Type: Report from Study
  Country: US (occurrence: US)
  Receive Date: 20140606
  Receipt Date: 20140606
  Transmission Date: 20141212
  Serious: Yes (Hospitalization)
  Sender: FDA-Public Use
  Company Number: US-BIOMARINAP-US-2014-102666

PATIENT
  Sex: Female
  Weight: 12.3 kg

DRUGS (2)
  1. NAGLAZYME [Suspect]
     Indication: MUCOPOLYSACCHARIDOSIS VI
     Dosage: 1 MG/KG, QW
     Route: 041
     Dates: start: 20100210
  2. ACETAMINOPHEN W/HYDROCODONE [Concomitant]
     Indication: PAIN
     Dosage: 7.5 MG, PRN
     Route: 048
     Dates: start: 20131104

REACTIONS (1)
  - Carpal tunnel syndrome [Recovered/Resolved]
